FAERS Safety Report 13599419 (Version 3)
Quarter: 2017Q3

REPORT INFORMATION
  Report Type: Spontaneous
  Country: GB (occurrence: GB)
  Receive Date: 20170531
  Receipt Date: 20170808
  Transmission Date: 20171127
  Serious: Yes (Death, Other)
  Sender: FDA-Public Use
  Company Number: GB-TEVA-771380ACC

PATIENT
  Age: 19 Year
  Sex: Female
  Weight: 63.5 kg

DRUGS (1)
  1. VERAPAMIL [Suspect]
     Active Substance: VERAPAMIL HYDROCHLORIDE
     Route: 065

REACTIONS (8)
  - Cardiac arrest [Fatal]
  - Seizure [Fatal]
  - Loss of consciousness [Fatal]
  - Prescription drug used without a prescription [Unknown]
  - Overdose [Fatal]
  - Vomiting [Fatal]
  - Cough [Fatal]
  - Discoloured vomit [Fatal]

NARRATIVE: CASE EVENT DATE: 201610
